FAERS Safety Report 24001873 (Version 1)
Quarter: 2024Q2

REPORT INFORMATION
  Report Type: Spontaneous
  Country: US (occurrence: US)
  Receive Date: 20240622
  Receipt Date: 20240622
  Transmission Date: 20240717
  Serious: No
  Sender: FDA-Public Use
  Company Number: US-VANTIVE-2024VAN017728

PATIENT

DRUGS (1)
  1. EXTRANEAL [Suspect]
     Active Substance: CALCIUM CHLORIDE\ICODEXTRIN\MAGNESIUM CHLORIDE\SODIUM CHLORIDE\SODIUM LACTATE
     Route: 033

REACTIONS (1)
  - Blood sodium abnormal [Unknown]

NARRATIVE: CASE EVENT DATE: 20240613
